FAERS Safety Report 16346464 (Version 3)
Quarter: 2019Q4

REPORT INFORMATION
  Report Type: Spontaneous
  Country: CA (occurrence: CA)
  Receive Date: 20190523
  Receipt Date: 20191115
  Transmission Date: 20200122
  Serious: Yes (Death, Other)
  Sender: FDA-Public Use
  Company Number: CA-MALLINCKRODT-T201903799

PATIENT
  Age: 84 Year
  Sex: Male

DRUGS (10)
  1. DEXAMETHASONE. [Suspect]
     Active Substance: DEXAMETHASONE
     Indication: CAUDA EQUINA SYNDROME
     Dosage: 8 MG, Q12H (1 EVERY 12 HOURS)
     Route: 065
  2. MORPHINE SULFATE. [Suspect]
     Active Substance: MORPHINE SULFATE
     Indication: CANCER PAIN
  3. METHADOSE [Suspect]
     Active Substance: METHADONE HYDROCHLORIDE
     Indication: CAUDA EQUINA SYNDROME
     Dosage: 2 MG, Q12H
     Route: 065
  4. METHADOSE [Suspect]
     Active Substance: METHADONE HYDROCHLORIDE
     Indication: CANCER PAIN
  5. PREGABALIN. [Suspect]
     Active Substance: PREGABALIN
     Indication: CAUDA EQUINA SYNDROME
     Dosage: 100 MILLIGRAM, QHS
     Route: 065
  6. MORPHINE SULFATE. [Suspect]
     Active Substance: MORPHINE SULFATE
     Indication: CAUDA EQUINA SYNDROME
     Dosage: 15 MG, Q12H
     Route: 065
  7. ACETAMINOPHEN. [Suspect]
     Active Substance: ACETAMINOPHEN
     Indication: CAUDA EQUINA SYNDROME
     Dosage: 1000 MG, Q6H (1 EVERY 6 HOURS)
     Route: 065
  8. ACETAMINOPHEN. [Suspect]
     Active Substance: ACETAMINOPHEN
     Indication: CANCER PAIN
  9. DEXAMETHASONE. [Suspect]
     Active Substance: DEXAMETHASONE
     Indication: CANCER PAIN
  10. PREGABALIN. [Suspect]
     Active Substance: PREGABALIN
     Indication: CANCER PAIN

REACTIONS (6)
  - Malignant melanoma [Fatal]
  - Metastases to bone [Fatal]
  - Therapeutic product effect incomplete [Unknown]
  - Delirium [Unknown]
  - Metastases to spine [Fatal]
  - Somnolence [Unknown]
